FAERS Safety Report 4700526-7 (Version None)
Quarter: 2005Q2

REPORT INFORMATION
  Report Type: 
  Country: None (occurrence: None)
  Receive Date: 20050627
  Receipt Date: 20050627
  Transmission Date: 20051028
  Serious: Yes (Disabling)
  Sender: FDA-Public Use
  Company Number: None

PATIENT
  Age: 38 Year
  Sex: Male
  Weight: 86.1834 kg

DRUGS (1)
  1. PAXIL [Suspect]
     Indication: DEPRESSION
     Dosage: 2 TABLETS   DAILY
     Dates: start: 20000107, end: 20000214

REACTIONS (4)
  - ANOREXIA [None]
  - MALAISE [None]
  - SEXUAL DYSFUNCTION [None]
  - SLEEP DISORDER [None]
